FAERS Safety Report 17832485 (Version 1)
Quarter: 2020Q2

REPORT INFORMATION
  Report Type: Spontaneous
  Country: GB (occurrence: GB)
  Receive Date: 20200528
  Receipt Date: 20200528
  Transmission Date: 20200714
  Serious: Yes (Hospitalization)
  Sender: FDA-Public Use
  Company Number: GB-TEVA-2020-GB-1239884

PATIENT
  Age: 76 Year
  Sex: Female

DRUGS (11)
  1. AMLODIPINE [Concomitant]
     Active Substance: AMLODIPINE BESYLATE
     Dosage: 5 MILLIGRAM
  2. POTASSIUM HYDROGEN CARBONATE [Concomitant]
     Dosage: SODIUM ALGINATE 500MG/POTASSIUM BICARBONATE 100MG
  3. CLOPIDOGREL [Concomitant]
     Active Substance: CLOPIDOGREL BISULFATE
     Dosage: 75 MILLIGRAM
  4. RIVASTIGMINE. [Concomitant]
     Active Substance: RIVASTIGMINE
     Dosage: 9.5MG/24HOURS :UNIT DOSE :1 DOSAGEFORM
     Route: 062
  5. LANSOPRAZOLE. [Concomitant]
     Active Substance: LANSOPRAZOLE
     Dosage: 60 MILLIGRAM
  6. RAMIPRIL. [Concomitant]
     Active Substance: RAMIPRIL
     Dosage: 10 MILLIGRAM
  7. SOLIFENACIN [Suspect]
     Active Substance: SOLIFENACIN
     Dosage: 10 MILLIGRAM
  8. SPASMONAL [Concomitant]
     Dosage: 180 MILLIGRAM
  9. SODIUM ALGINATE [Concomitant]
     Active Substance: SODIUM ALGINATE
     Dosage: SODIUM ALGINATE 500MG/POTASSIUM BICARBONATE 100MG
  10. ZAPAIN [Concomitant]
     Active Substance: ACETAMINOPHEN\CODEINE PHOSPHATE
     Dosage: 30MG/500MG?UNIT DOSE:8 DOSAGEFORM
  11. BISOPROLOL [Concomitant]
     Active Substance: BISOPROLOL
     Dosage: 5 MILLIGRAM

REACTIONS (2)
  - Acute kidney injury [Unknown]
  - Urinary retention [Unknown]
